FAERS Safety Report 10302173 (Version 5)
Quarter: 2014Q3

REPORT INFORMATION
  Report Type: Spontaneous
  Country: EG (occurrence: None)
  Receive Date: 20140709
  Receipt Date: 20140926
  Transmission Date: 20150326
  Serious: Yes (Life-Threatening, Hospitalization)
  Sender: FDA-Public Use
  Company Number: 2014RN000027

PATIENT
  Age: 5 Year
  Sex: Male

DRUGS (4)
  1. ZOVIRAX [Suspect]
     Active Substance: ACYCLOVIR
     Indication: HERPES VIRUS INFECTION
     Route: 048
     Dates: start: 20140408, end: 20140415
  2. LABETALOL HYDROCHLORIDE (LABETALOL HYDROCHLORIDE) [Concomitant]
  3. INDERAL [Concomitant]
     Active Substance: PROPRANOLOL HYDROCHLORIDE
  4. NON-GSK PROPRANOLOL HCL [Concomitant]

REACTIONS (18)
  - Mood altered [None]
  - Rash [None]
  - Arthralgia [None]
  - Reflexes abnormal [None]
  - Photophobia [None]
  - Skin odour abnormal [None]
  - Insomnia [None]
  - Decreased appetite [None]
  - Gait disturbance [None]
  - Fatigue [None]
  - Hyperaesthesia [None]
  - Hypersensitivity [None]
  - Hypertension [None]
  - Tachycardia [None]
  - Areflexia [None]
  - Ill-defined disorder [None]
  - Heart sounds abnormal [None]
  - Muscular weakness [None]

NARRATIVE: CASE EVENT DATE: 20140408
